FAERS Safety Report 7136797-X (Version None)
Quarter: 2010Q4

REPORT INFORMATION
  Report Type: 
  Country: None (occurrence: None)
  Receive Date: 20101206
  Receipt Date: 20091215
  Transmission Date: 20110411
  Serious: Yes (Death, Hospitalization)
  Sender: FDA-Public Use
  Company Number: US-ACTELION-A-NJ2008-19667

PATIENT

DRUGS (1)
  1. TRACLEER [Suspect]
     Indication: PULMONARY ARTERIAL HYPERTENSION
     Route: 048
     Dates: start: 20021001

REACTIONS (16)
  - ABASIA [None]
  - ABDOMINAL DISTENSION [None]
  - ALANINE AMINOTRANSFERASE INCREASED [None]
  - ASPARTATE AMINOTRANSFERASE INCREASED [None]
  - BLISTER [None]
  - BLOOD ALKALINE PHOSPHATASE INCREASED [None]
  - CATHETERISATION CARDIAC [None]
  - CONDITION AGGRAVATED [None]
  - DEATH [None]
  - DIZZINESS [None]
  - DYSPNOEA [None]
  - HAEMATOMA [None]
  - HYPOAESTHESIA [None]
  - LIVER FUNCTION TEST ABNORMAL [None]
  - NERVE INJURY [None]
  - OEDEMA PERIPHERAL [None]
